FAERS Safety Report 5497842-0 (Version None)
Quarter: 2007Q4

REPORT INFORMATION
  Report Type: 
  Country: None (occurrence: None)
  Receive Date: 20071025
  Receipt Date: 20070308
  Transmission Date: 20080405
  Serious: No
  Sender: FDA-Public Use
  Company Number: A0642439A

PATIENT
  Age: 65 Year
  Sex: Female

DRUGS (5)
  1. ADVAIR DISKUS 100/50 [Suspect]
     Route: 055
     Dates: start: 20070305
  2. PREDNISONE [Concomitant]
  3. MUCINEX [Concomitant]
  4. CIPROFLOXACIN [Concomitant]
  5. LIPITOR [Concomitant]

REACTIONS (2)
  - LIP ULCERATION [None]
  - THERAPEUTIC RESPONSE UNEXPECTED [None]
